FAERS Safety Report 6613981-2 (Version None)
Quarter: 2010Q1

REPORT INFORMATION
  Report Type: 
  Country: None (occurrence: None)
  Receive Date: 20100304
  Receipt Date: 20100223
  Transmission Date: 20100710
  Serious: Yes (Other)
  Sender: FDA-Public Use
  Company Number: US-JNJCH-2010005085

PATIENT
  Age: 82 Year
  Sex: Female
  Weight: 113.4 kg

DRUGS (2)
  1. BENGAY ULTRA STRENGTH [Suspect]
     Indication: ARTHRITIS
     Dosage: TEXT:^ABOUT THE SITE OF A QUARTER^ ONCE
     Route: 061
  2. IPRATROPIUM [Concomitant]
     Indication: DYSPNOEA
     Dosage: TEXT:UNKNOWN
     Route: 065

REACTIONS (3)
  - APPLICATION SITE BURN [None]
  - APPLICATION SITE ERYTHEMA [None]
  - WOUND [None]
